FAERS Safety Report 6993955-2 (Version None)
Quarter: 2010Q3

REPORT INFORMATION
  Report Type: 
  Country: None (occurrence: None)
  Receive Date: 20100917
  Receipt Date: 20071003
  Transmission Date: 20110219
  Serious: Yes (Hospitalization)
  Sender: FDA-Public Use
  Company Number: US-ASTRAZENECA-2006UW23303

PATIENT
  Age: 10481 Day
  Sex: Male
  Weight: 113.4 kg

DRUGS (10)
  1. SEROQUEL [Suspect]
     Indication: SCHIZOPHRENIA
     Dosage: 100-200 MG
     Route: 048
     Dates: start: 20010101
  2. SEROQUEL [Suspect]
     Indication: BIPOLAR DISORDER
     Dosage: 100-200 MG
     Route: 048
     Dates: start: 20010101
  3. SEROQUEL [Suspect]
     Indication: DEPRESSION
     Dosage: 100-200 MG
     Route: 048
     Dates: start: 20010101
  4. SEROQUEL [Suspect]
     Route: 048
     Dates: start: 20040901, end: 20051001
  5. SEROQUEL [Suspect]
     Route: 048
     Dates: start: 20040901, end: 20051001
  6. SEROQUEL [Suspect]
     Route: 048
     Dates: start: 20040901, end: 20051001
  7. ZYPREXA [Concomitant]
  8. KLONOPIN [Concomitant]
     Dosage: 1-3 MG
     Dates: start: 20030928
  9. NOVOLOG [Concomitant]
     Dosage: 6-24 IU
     Route: 058
     Dates: start: 20030928
  10. ATIVAN [Concomitant]
     Dates: start: 19960813

REACTIONS (2)
  - DIABETES MELLITUS [None]
  - TYPE 1 DIABETES MELLITUS [None]
